FAERS Safety Report 7615660-1 (Version None)
Quarter: 2011Q3

REPORT INFORMATION
  Report Type: 
  Country: None (occurrence: None)
  Receive Date: 20110711
  Receipt Date: 20110620
  Transmission Date: 20111222
  Serious: Yes (Hospitalization)
  Sender: FDA-Public Use
  Company Number: CIO11012326

PATIENT
  Sex: Female

DRUGS (2)
  1. PAROXETINE HCL [Suspect]
     Indication: DEPRESSION
     Dosage: ORAL
     Route: 048
  2. GUAIFENESIN AND DEXTROMETHORPHAN HBR [Suspect]
     Indication: COUGH
     Dosage: ORAL
     Route: 048

REACTIONS (1)
  - SEROTONIN SYNDROME [None]
